FAERS Safety Report 8500912-3 (Version None)
Quarter: 2012Q3

REPORT INFORMATION
  Report Type: 
  Country: None (occurrence: None)
  Receive Date: 20120710
  Receipt Date: 20120706
  Transmission Date: 20120928
  Serious: Yes (Other)
  Sender: FDA-Public Use
  Company Number: PHHY2012FR023834

PATIENT
  Sex: Male
  Weight: 95 kg

DRUGS (1)
  1. GILENYA [Suspect]
     Indication: MULTIPLE SCLEROSIS
     Dosage: 0.5 MG, QD
     Route: 048
     Dates: start: 20120308

REACTIONS (5)
  - CHEST PAIN [None]
  - HYPERTHERMIA [None]
  - DYSPNOEA [None]
  - DYSPNOEA EXERTIONAL [None]
  - LUNG DISORDER [None]
